FAERS Safety Report 26161653 (Version 1)
Quarter: 2025Q4

REPORT INFORMATION
  Report Type: Spontaneous
  Country: EU (occurrence: EU)
  Receive Date: 20251216
  Receipt Date: 20251216
  Transmission Date: 20260118
  Serious: Yes (Other)
  Sender: BOEHRINGER INGELHEIM
  Company Number: EU-BoehringerIngelheim-2025-BI-114927

PATIENT
  Sex: Male
  Weight: 64 kg

DRUGS (13)
  1. NINTEDANIB [Suspect]
     Active Substance: NINTEDANIB
     Indication: Disease progression
     Dosage: MAR-2023: REDUCED NINTEDANIB DOSE
  2. NINTEDANIB [Suspect]
     Active Substance: NINTEDANIB
     Dates: start: 202303, end: 202304
  3. FENOTEROL HYDROBROMIDE\IPRATROPIUM BROMIDE [Suspect]
     Active Substance: FENOTEROL HYDROBROMIDE\IPRATROPIUM BROMIDE
     Indication: Product used for unknown indication
     Dosage: 200 PUFFS 2 PUFFS BY DYSPNEA UP TO 5X/DAY
  4. Pirfenidone RTP [Concomitant]
     Indication: Product used for unknown indication
     Dosage: 1-1-1 ONGOING
  5. OXYGEN [Concomitant]
     Active Substance: OXYGEN
     Indication: Product used for unknown indication
  6. BEMPEDOIC ACID [Concomitant]
     Active Substance: BEMPEDOIC ACID
     Indication: Product used for unknown indication
     Dosage: 0-0-1
  7. OLEOVIT D3 TR [Concomitant]
     Indication: Product used for unknown indication
     Dosage: 30 DROPS 1X / WEEK (SATURDAY)
  8. Pantip MSR tablet [Concomitant]
     Indication: Product used for unknown indication
     Dosage: MSR TABLET 40 MG 1-0-0
  9. Atarx [Concomitant]
     Indication: Product used for unknown indication
  10. Mirtabene RTP GMBH [Concomitant]
     Indication: Product used for unknown indication
     Dosage: 0-0-0-1
  11. ATORVASTATIN CALCIUM\EZETIMIBE [Concomitant]
     Active Substance: ATORVASTATIN CALCIUM\EZETIMIBE
     Indication: Product used for unknown indication
     Dosage: 10/80 MG 0-0-1
  12. ASPIRIN [Concomitant]
     Active Substance: ASPIRIN
     Indication: Product used for unknown indication
     Dosage: 0-1-0
  13. Mundidol Ret [Concomitant]
     Indication: Product used for unknown indication
     Dosage: 0-0-1

REACTIONS (1)
  - Idiopathic pulmonary fibrosis [Unknown]
